APPROVED DRUG PRODUCT: TOBRAMYCIN SULFATE
Active Ingredient: TOBRAMYCIN SULFATE
Strength: EQ 1.2GM BASE/VIAL
Dosage Form/Route: INJECTABLE;INJECTION
Application: A205685 | Product #001 | TE Code: AP
Applicant: XELLIA PHARMACEUTICALS APS
Approved: Sep 16, 2014 | RLD: No | RS: No | Type: RX